FAERS Safety Report 16010618 (Version 1)
Quarter: 2019Q1

REPORT INFORMATION
  Report Type: Spontaneous
  Country: US (occurrence: US)
  Receive Date: 20190225
  Receipt Date: 20190225
  Transmission Date: 20190418
  Serious: Yes (Other)
  Sender: FDA-Public Use
  Company Number: PHEH2019US008294

PATIENT
  Sex: Male

DRUGS (1)
  1. TASIGNA [Suspect]
     Active Substance: NILOTINIB
     Indication: CHRONIC MYELOID LEUKAEMIA
     Dosage: 02 DF, BID
     Route: 048

REACTIONS (7)
  - Myocardial infarction [Unknown]
  - Intermittent claudication [Unknown]
  - Arteriosclerosis [Unknown]
  - Hypertension [Unknown]
  - Peripheral ischaemia [Unknown]
  - Peripheral arterial occlusive disease [Unknown]
  - Coronary artery disease [Unknown]
